FAERS Safety Report 24555457 (Version 3)
Quarter: 2024Q4

REPORT INFORMATION
  Report Type: Spontaneous
  Country: US (occurrence: US)
  Receive Date: 20241028
  Receipt Date: 20241105
  Transmission Date: 20250115
  Serious: No
  Sender: TORRENT PHARMA INC.
  Company Number: US-TORRENT-00013807

PATIENT
  Sex: Female

DRUGS (1)
  1. DAPSONE [Suspect]
     Active Substance: DAPSONE
     Indication: Product used for unknown indication
     Dosage: UNKNOWN
     Route: 065

REACTIONS (4)
  - Skin exfoliation [Unknown]
  - Product quality issue [Unknown]
  - Joint injury [Unknown]
  - Mobility decreased [Unknown]
